FAERS Safety Report 6659902-8 (Version None)
Quarter: 2010Q1

REPORT INFORMATION
  Report Type: 
  Country: None (occurrence: None)
  Receive Date: 20100330
  Receipt Date: 20100330
  Transmission Date: 20100710
  Serious: Yes (Life-Threatening)
  Sender: FDA-Public Use
  Company Number: None

PATIENT
  Age: 44 Year
  Sex: Female
  Weight: 130 kg

DRUGS (2)
  1. IMATINIB 100-400MG [Suspect]
     Indication: CHRONIC MYELOID LEUKAEMIA
     Dosage: 100-400MG DAILY PO
     Route: 048
     Dates: start: 20090424, end: 20090515
  2. PRAVASTATIN 5MG [Suspect]
     Indication: CORONARY ARTERY DISEASE
     Dosage: 5MG DAILY PO
     Route: 048
     Dates: start: 20090511, end: 20090515

REACTIONS (1)
  - HEPATIC FAILURE [None]
